FAERS Safety Report 9728541 (Version 3)
Quarter: 2014Q1

REPORT INFORMATION
  Report Type: Report from Study
  Country: JP (occurrence: JP)
  Receive Date: 20131204
  Receipt Date: 20140303
  Transmission Date: 20141002
  Serious: Yes (Death)
  Sender: FDA-Public Use
  Company Number: JP-SHIRE-ALL1-2013-06853

PATIENT
  Sex: 0

DRUGS (9)
  1. 405 (LANTHANUM CARBONATE) [Suspect]
     Indication: HYPERPHOSPHATAEMIA
     Dosage: 750 MG, UNKNOWN (TOTAL DAILY DOSE OF 750MG, TAKEN UNKNOWN FREQUENCY/MG)
     Route: 048
     Dates: start: 20100322
  2. PRECIPITATED CALCIUM CARBONATE [Suspect]
     Indication: HYPERPHOSPHATAEMIA
     Dosage: 1.5 G, UNKNOWN (DAILY DOSE)
     Route: 048
  3. D ALFA [Suspect]
     Indication: PRODUCT USED FOR UNKNOWN INDICATION
     Dosage: 0.25 ?G, UNKNOWN (DAILY DOSE)
     Route: 048
     Dates: end: 20100920
  4. RENAGEL                            /01459902/ [Concomitant]
     Indication: HYPERPHOSPHATAEMIA
     Dosage: 2250 MG, UNKNOWN
     Route: 048
  5. BAYASPIRIN [Concomitant]
     Indication: PRODUCT USED FOR UNKNOWN INDICATION
     Dosage: 100 MG, UNKNOWN
     Route: 048
  6. ARTIST [Concomitant]
     Indication: PRODUCT USED FOR UNKNOWN INDICATION
     Dosage: 10 MG, UNKNOWN
     Route: 048
  7. IRBETAN [Concomitant]
     Indication: PRODUCT USED FOR UNKNOWN INDICATION
     Dosage: 100 MG, UNKNOWN
     Route: 048
  8. ALLOZYM [Concomitant]
     Indication: PRODUCT USED FOR UNKNOWN INDICATION
     Dosage: 100 MG, UNKNOWN
     Route: 048
  9. OPALMON [Concomitant]
     Indication: PRODUCT USED FOR UNKNOWN INDICATION
     Dosage: 30 ?G, UNKNOWN
     Route: 048

REACTIONS (2)
  - Cardiac failure congestive [Fatal]
  - Myocardial infarction [Fatal]
